FAERS Safety Report 8908462 (Version 2)
Quarter: 2012Q4

REPORT INFORMATION
  Report Type: Report from Study
  Country: US (occurrence: US)
  Receive Date: 20121114
  Receipt Date: 20121120
  Transmission Date: 20130627
  Serious: Yes (Death)
  Sender: FDA-Public Use
  Company Number: US-CELGENEUS-163-21880-12111486

PATIENT
  Age: 65 Year
  Sex: Male
  Weight: 80.7 kg

DRUGS (17)
  1. REVLIMID [Suspect]
     Indication: CLL
     Dosage: 5 Milligram
     Route: 048
     Dates: start: 20121102, end: 20121107
  2. CATHFLO ACTIVASE [Concomitant]
     Indication: DRUG USE FOR UNKNOWN INDICATION
     Dosage: 2 Milligram
     Route: 041
  3. DIPHENHYDRAMINE [Concomitant]
     Indication: DRUG USE FOR UNKNOWN INDICATION
     Dosage: 50mg/1ml
     Route: 041
  4. FISH OIL [Concomitant]
     Indication: DRUG USE FOR UNKNOWN INDICATION
     Dosage: 1000 Milligram
     Route: 048
  5. KEFLEX [Concomitant]
     Indication: DRUG USE FOR UNKNOWN INDICATION
     Dosage: 4 Tablet
     Route: 048
  6. MORPHINE SULFATE [Concomitant]
     Indication: DRUG USE FOR UNKNOWN INDICATION
     Dosage: 15 Milligram
     Route: 048
  7. PHENERGAN [Concomitant]
     Indication: NAUSEA
     Dosage: 25 Milligram
     Route: 054
  8. ZOFRAN [Concomitant]
     Indication: NAUSEA
     Dosage: 4 Milligram
     Route: 048
  9. HYOSCYAMINE [Concomitant]
     Indication: DRUG USE FOR UNKNOWN INDICATION
     Dosage: .125 Milligram
     Route: 048
  10. IBUPROFEN [Concomitant]
     Indication: DRUG USE FOR UNKNOWN INDICATION
     Dosage: 200 Milligram
     Route: 048
  11. MAGNESIUM CITRATE [Concomitant]
     Indication: DRUG USE FOR UNKNOWN INDICATION
     Dosage: 300 Milligram
     Route: 048
  12. MULTIVITAMIN [Concomitant]
     Dosage: 1 Tablet
     Route: 048
  13. BACTRIM [Concomitant]
     Indication: PROPHYLAXIS
     Route: 048
  14. FLUCONAZOLE [Concomitant]
     Indication: PROPHYLAXIS
     Dosage: 100 Milligram
     Route: 048
  15. ACYCLOVIR [Concomitant]
     Indication: PROPHYLAXIS
     Dosage: 400 Milligram
     Route: 048
  16. ALLOPURINOL [Concomitant]
     Indication: DRUG USE FOR UNKNOWN INDICATION
     Dosage: 300 Milligram
     Route: 048
  17. PREDNISONE [Concomitant]
     Indication: DRUG USE FOR UNKNOWN INDICATION
     Route: 048

REACTIONS (1)
  - Chronic lymphocytic leukaemia [Fatal]
